FAERS Safety Report 5563606-2 (Version None)
Quarter: 2007Q4

REPORT INFORMATION
  Report Type: 
  Country: None (occurrence: None)
  Receive Date: 20071217
  Receipt Date: 20070713
  Transmission Date: 20080405
  Serious: No
  Sender: FDA-Public Use
  Company Number: US-ASTRAZENECA-2007UW16511

PATIENT
  Age: 64 Year

DRUGS (3)
  1. CRESTOR [Suspect]
     Route: 048
  2. LOPID [Suspect]
  3. ALCOHOL [Suspect]

REACTIONS (1)
  - JAUNDICE CHOLESTATIC [None]
